FAERS Safety Report 10042336 (Version 1)
Quarter: 2014Q1

REPORT INFORMATION
  Report Type: Spontaneous
  Country: DE (occurrence: DE)
  Receive Date: 20140327
  Receipt Date: 20140327
  Transmission Date: 20141002
  Serious: Yes (Other)
  Sender: FDA-Public Use
  Company Number: DE-GILEAD-2014-0097988

PATIENT
  Sex: Female

DRUGS (4)
  1. VIREAD [Suspect]
     Indication: HEPATITIS B
     Dosage: UNK
     Route: 065
  2. VOLTAREN                           /00372301/ [Concomitant]
  3. IBUPROFEN [Concomitant]
  4. SEVIKAR/HCT [Concomitant]

REACTIONS (3)
  - Hepatitis B surface antigen positive [Unknown]
  - Viral load increased [Unknown]
  - Drug ineffective [None]
